FAERS Safety Report 6310116-0 (Version None)
Quarter: 2009Q3

REPORT INFORMATION
  Report Type: 
  Country: None (occurrence: None)
  Receive Date: 20090814
  Receipt Date: 20090805
  Transmission Date: 20100115
  Serious: Yes (Other)
  Sender: FDA-Public Use
  Company Number: US-WATSON-2009-06316

PATIENT
  Age: 68 Year
  Sex: Female
  Weight: 62.585 kg

DRUGS (3)
  1. PRIMIDONE [Suspect]
     Indication: CONVULSION
     Dosage: UNK
     Route: 048
     Dates: start: 20080101
  2. DILANTIN [Suspect]
     Indication: CONVULSION
     Dosage: 100 MG, BID OR TID
     Dates: start: 19590101
  3. SYNTHROID [Suspect]
     Indication: HORMONE REPLACEMENT THERAPY
     Dosage: UNK

REACTIONS (3)
  - CONVULSION [None]
  - DRUG INEFFECTIVE [None]
  - WEIGHT INCREASED [None]
